FAERS Safety Report 18855112 (Version 2)
Quarter: 2021Q1

REPORT INFORMATION
  Report Type: Other
  Country: US (occurrence: US)
  Receive Date: 20210205
  Receipt Date: 20210331
  Transmission Date: 20210420
  Serious: Yes (Hospitalization, Other)
  Sender: FDA-Public Use
  Company Number: US-AMAG PHARMACEUTICALS, INC.-AMAG202100419

PATIENT
  Age: 21 Year
  Sex: Female
  Weight: 53.57 kg

DRUGS (6)
  1. MACROBID [Concomitant]
     Active Substance: NITROFURANTOIN\NITROFURANTOIN MONOHYDRATE
     Indication: PRODUCT USED FOR UNKNOWN INDICATION
     Dosage: 1 CAPSULE NIGHTLY
  2. PNV [Concomitant]
     Indication: PRODUCT USED FOR UNKNOWN INDICATION
     Dosage: PRENATAL GUMMIES? NO.153/FA/OM3/DHA/EPA/FISH
     Route: 048
  3. MAKENA [Suspect]
     Active Substance: HYDROXYPROGESTERONE CAPROATE
     Indication: PREMATURE DELIVERY
     Dosage: 275MG/1.1ML
     Route: 058
     Dates: start: 20201130, end: 20201231
  4. KEFLEX [Concomitant]
     Active Substance: CEPHALEXIN
     Indication: PRODUCT USED FOR UNKNOWN INDICATION
     Dosage: CAPSULE
     Route: 048
  5. HYDROCORTISONE. [Concomitant]
     Active Substance: HYDROCORTISONE
     Indication: HAEMORRHOIDS
     Dosage: 2.5% RECTAL CREAM, INSERT INTO THE RECTUM 2 TIMES A DAY AS NEEDED FOR HEMORRHOIDS
  6. COLACE [Concomitant]
     Active Substance: DOCUSATE SODIUM
     Indication: PRODUCT USED FOR UNKNOWN INDICATION
     Dosage: CAPSULE

REACTIONS (13)
  - Abdominal pain lower [Unknown]
  - Dysuria [Unknown]
  - Amniotic cavity infection [Recovered/Resolved]
  - Premature delivery [Recovered/Resolved]
  - Myalgia [Recovered/Resolved]
  - Uterine tenderness [Recovered/Resolved]
  - Pyrexia [Recovered/Resolved]
  - Malaise [Recovered/Resolved]
  - Vaginal haemorrhage [Recovered/Resolved]
  - Preterm premature rupture of membranes [Recovered/Resolved]
  - Cervical discharge [Recovered/Resolved]
  - Induced labour [Recovered/Resolved]
  - Pollakiuria [Unknown]

NARRATIVE: CASE EVENT DATE: 202012
